FAERS Safety Report 8030125-3 (Version None)
Quarter: 2011Q4

REPORT INFORMATION
  Report Type: 
  Country: None (occurrence: None)
  Receive Date: 20111130
  Receipt Date: 20110616
  Transmission Date: 20120403
  Serious: Yes (Hospitalization, Other)
  Sender: FDA-Public Use
  Company Number: US201002003452

PATIENT
  Sex: Female
  Weight: 97.5 kg

DRUGS (6)
  1. HYDROCHLOROTHIAZIDE (HYDROCHLORTHIAZIDE) [Concomitant]
  2. LISINOPRIL [Concomitant]
  3. METFORMIN HCL [Concomitant]
  4. BYETTA [Suspect]
     Dates: start: 20070121, end: 20081201
  5. EXENATIDE UNK STRENGTH PEN, DISPOSABLE DEVICE (EXENATIDE PEN (UNKNOWN [Concomitant]
  6. NORVASC (AMLODIPINE MESILATE) [Concomitant]

REACTIONS (1)
  - PANCREATITIS [None]
